FAERS Safety Report 22649558 (Version 1)
Quarter: 2023Q2

REPORT INFORMATION
  Report Type: Spontaneous
  Country: US (occurrence: US)
  Receive Date: 20230628
  Receipt Date: 20230628
  Transmission Date: 20230722
  Serious: Yes (Life-Threatening, Other)
  Sender: FDA-Public Use
  Company Number: US-SA-2023SA192386

PATIENT
  Sex: Male

DRUGS (11)
  1. LIBTAYO [Suspect]
     Active Substance: CEMIPLIMAB-RWLC
     Indication: Neoadjuvant therapy
  2. LIBTAYO [Suspect]
     Active Substance: CEMIPLIMAB-RWLC
     Dosage: UNK UNK, Q3W
  3. LIBTAYO [Suspect]
     Active Substance: CEMIPLIMAB-RWLC
     Dosage: (1 PREOPERATIVE DOSE AND 3 POSTOPERATIVE DOSES)
  4. INTERLEUKIN-12 HUMAN RECOMBINANT [Suspect]
     Active Substance: INTERLEUKIN-12 HUMAN RECOMBINANT
     Indication: Product used for unknown indication
  5. INTERLEUKIN-12 HUMAN RECOMBINANT [Suspect]
     Active Substance: INTERLEUKIN-12 HUMAN RECOMBINANT
     Dosage: (1 PREOPERATIVE DOSE AND 3 POSTOPERATIVE DOSES)
  6. TEMOZOLOMIDE [Concomitant]
     Active Substance: TEMOZOLOMIDE
     Indication: Astrocytoma
  7. TEMOZOLOMIDE [Concomitant]
     Active Substance: TEMOZOLOMIDE
     Indication: Isocitrate dehydrogenase gene mutation
  8. VELEDIMEX [Concomitant]
     Active Substance: VELEDIMEX
     Indication: Product used for unknown indication
     Dosage: 20 MG
     Route: 048
  9. VELEDIMEX [Concomitant]
     Active Substance: VELEDIMEX
     Dosage: 20 MG, QD (POST-OPERATIVE)
     Route: 048
  10. PAMIPARIB [Concomitant]
     Active Substance: PAMIPARIB
     Indication: Astrocytoma
  11. PAMIPARIB [Concomitant]
     Active Substance: PAMIPARIB
     Indication: Isocitrate dehydrogenase gene mutation

REACTIONS (3)
  - Granuloma [Unknown]
  - Necrosis [Unknown]
  - Fatigue [Unknown]
